FAERS Safety Report 25993977 (Version 1)
Quarter: 2025Q4

REPORT INFORMATION
  Report Type: Spontaneous
  Country: ME (occurrence: ME)
  Receive Date: 20251104
  Receipt Date: 20251104
  Transmission Date: 20260118
  Serious: Yes (Death)
  Sender: MERCK SHARP & DOHME LLC
  Company Number: ME-009507513-2345737

PATIENT
  Sex: Male

DRUGS (1)
  1. PEMBROLIZUMAB [Suspect]
     Active Substance: PEMBROLIZUMAB
     Indication: Squamous cell carcinoma of head and neck
     Dates: start: 202308, end: 2025

REACTIONS (1)
  - Vasculitis necrotising [Fatal]

NARRATIVE: CASE EVENT DATE: 20250701
